FAERS Safety Report 5048779-2 (Version None)
Quarter: 2006Q3

REPORT INFORMATION
  Report Type: 
  Country: None (occurrence: None)
  Receive Date: 20060705
  Receipt Date: 20060612
  Transmission Date: 20061208
  Serious: Yes (Hospitalization)
  Sender: FDA-Public Use
  Company Number: JP200604004048

PATIENT
  Age: 67 Year
  Sex: Female
  Weight: 49.4 kg

DRUGS (12)
  1. HUMULIN R [Suspect]
     Indication: ALLERGENIC DESENSITISATION PROCEDURE
     Dosage: SEE IMAGE
     Route: 058
     Dates: start: 20051107, end: 20051201
  2. HUMULIN R [Suspect]
     Indication: ALLERGENIC DESENSITISATION PROCEDURE
     Dosage: SEE IMAGE
     Route: 058
     Dates: start: 20051202, end: 20051204
  3. HUMACART REGULAR (HUMAN INSULIN (RDNA ORIGIN) REGULAR) PEN, DISPOSABLE [Suspect]
     Indication: ALLERGENIC DESENSITISATION PROCEDURE
     Dosage: 2 U, DAILY (1/D), SUBCUTANEOUS
     Route: 058
     Dates: start: 20051205
  4. HUMULIN R PEN [Concomitant]
  5. METFORMIN HYDROCHLORIDE [Concomitant]
  6. MITIGLINIDE [Concomitant]
  7. KINEDAK (EPALRESTAT) [Concomitant]
  8. METHYCOBAL (MECOBALAMIN) [Concomitant]
  9. BISOPROLOL FUMARATE [Concomitant]
  10. ATELEC (CILNIDIPINE) [Concomitant]
  11. RIZE (CLOTIAZEPAM) [Concomitant]
  12. LIPITOR [Concomitant]

REACTIONS (2)
  - DRUG HYPERSENSITIVITY [None]
  - EOSINOPHILIA [None]
